FAERS Safety Report 8949033 (Version 1)
Quarter: 2012Q4

REPORT INFORMATION
  Report Type: 
  Country: US (occurrence: US)
  Receive Date: 20121206
  Receipt Date: 20121206
  Transmission Date: 20130627
  Serious: No
  Sender: FDA-Public Use
  Company Number: US-009507513-1210USA004129

PATIENT
  Age: 79 Year
  Sex: Female
  Weight: 50.34 kg

DRUGS (12)
  1. CLARITIN [Suspect]
     Indication: SNEEZING
     Dosage: 10 mg, qd
     Route: 048
  2. CLARITIN [Suspect]
     Indication: RHINORRHOEA
     Dosage: 10 mg, qd
     Route: 048
  3. CLARITIN [Suspect]
     Indication: LACRIMATION INCREASED
  4. ENALAPRIL MALEATE [Concomitant]
     Indication: BLOOD PRESSURE
     Dosage: UNK, qd
  5. ZETIA [Concomitant]
     Indication: BLOOD CHOLESTEROL
     Dosage: UNK, qd
  6. CYANOCOBALAMIN [Concomitant]
     Indication: PRODUCT USED FOR UNKNOWN INDICATION
     Dosage: UNK, Unknown
  7. ASCORBIC ACID [Concomitant]
     Indication: PRODUCT USED FOR UNKNOWN INDICATION
     Dosage: UNK, Unknown
  8. VITAMIN D (UNSPECIFIED) [Concomitant]
     Indication: PRODUCT USED FOR UNKNOWN INDICATION
     Dosage: UNK, Unknown
  9. VITAMIN E [Concomitant]
     Indication: PRODUCT USED FOR UNKNOWN INDICATION
     Dosage: UNK, Unknown
  10. CALCIUM (UNSPECIFIED) [Concomitant]
     Indication: PRODUCT USED FOR UNKNOWN INDICATION
     Dosage: UNK, Unknown
  11. OMEGA-3 MARINE TRIGLYCERIDES [Concomitant]
     Indication: PRODUCT USED FOR UNKNOWN INDICATION
     Dosage: UNK, Unknown
  12. ACETAMINOPHEN [Concomitant]
     Indication: PRODUCT USED FOR UNKNOWN INDICATION
     Dosage: UNK, prn

REACTIONS (1)
  - Somnolence [Recovered/Resolved]
